FAERS Safety Report 4539566-X (Version None)
Quarter: 2004Q4

REPORT INFORMATION
  Report Type: 
  Country: None (occurrence: None)
  Receive Date: 20041222
  Receipt Date: 20041209
  Transmission Date: 20050328
  Serious: Yes (Other)
  Sender: FDA-Public Use
  Company Number: 2004039162

PATIENT

DRUGS (3)
  1. LIPITOR [Suspect]
     Indication: BLOOD CHOLESTEROL INCREASED
     Dosage: 10 MG (10 MG, DAILY) , ORAL
     Route: 048
     Dates: end: 20020801
  2. LIPITOR [Suspect]
     Indication: MYALGIA
     Dosage: 10 MG (10 MG, DAILY) , ORAL
     Route: 048
     Dates: end: 20020801
  3. LEVOTHYROXINE SODIUM [Concomitant]

REACTIONS (6)
  - AORTIC VALVE REPLACEMENT [None]
  - BLOOD CHOLESTEROL INCREASED [None]
  - BLOOD CREATINE PHOSPHOKINASE INCREASED [None]
  - CONDITION AGGRAVATED [None]
  - INSOMNIA [None]
  - MYALGIA [None]
